FAERS Safety Report 5372450-0 (Version None)
Quarter: 2007Q2

REPORT INFORMATION
  Report Type: 
  Country: None (occurrence: None)
  Receive Date: 20070625
  Receipt Date: 20070620
  Transmission Date: 20071010
  Serious: Yes (Hospitalization)
  Sender: FDA-Public Use
  Company Number: 16807

PATIENT
  Age: 64 Year
  Sex: Male
  Weight: 84.9 kg

DRUGS (4)
  1. CYTARABINE [Suspect]
     Indication: ACUTE MYELOID LEUKAEMIA
     Dates: start: 20070511, end: 20070515
  2. MITOXANTRONE [Suspect]
     Indication: ACUTE MYELOID LEUKAEMIA
     Dates: start: 20070511, end: 20070515
  3. ETOPOSIDE [Suspect]
     Indication: ACUTE MYELOID LEUKAEMIA
     Dates: start: 20070511, end: 20070515
  4. CEP-701 [Suspect]
     Indication: ACUTE MYELOID LEUKAEMIA
     Dosage: 80 MG BID PO
     Route: 048
     Dates: start: 20070517, end: 20070522

REACTIONS (5)
  - DYSPHAGIA [None]
  - FEBRILE NEUTROPENIA [None]
  - MUCOSAL INFLAMMATION [None]
  - ORAL PAIN [None]
  - WHITE BLOOD CELL COUNT DECREASED [None]
